FAERS Safety Report 6771088-8 (Version None)
Quarter: 2010Q2

REPORT INFORMATION
  Report Type: 
  Country: None (occurrence: None)
  Receive Date: 20100616
  Receipt Date: 20100608
  Transmission Date: 20101027
  Serious: Yes (Other)
  Sender: FDA-Public Use
  Company Number: US-JNJFOC-20100603015

PATIENT
  Age: 36 Year
  Sex: Male

DRUGS (17)
  1. FENTANYL-100 [Suspect]
     Indication: BACK PAIN
     Route: 062
  2. FENTANYL-100 [Suspect]
     Route: 062
  3. FENTANYL-100 [Suspect]
     Indication: NECK PAIN
     Route: 062
  4. FENTANYL-100 [Suspect]
     Route: 062
  5. FENTANYL-100 [Suspect]
     Indication: BACK PAIN
     Route: 062
  6. FENTANYL-100 [Suspect]
     Route: 062
  7. FENTANYL-100 [Suspect]
     Dosage: 2 X 75 UG/HR PATCH
     Route: 062
  8. FENTANYL-100 [Suspect]
     Dosage: 2 X 75 UG/HR PATCH
     Route: 062
  9. FENTANYL-100 [Suspect]
     Dosage: 2 X 75 UG/HR PATCH
     Route: 062
  10. FENTANYL-100 [Suspect]
     Indication: NECK PAIN
     Dosage: 2 X 75 UG/HR PATCH
     Route: 062
  11. FENTANYL-100 [Suspect]
     Route: 062
  12. FENTANYL-100 [Suspect]
     Dosage: 2 X 75 UG/HR PATCH
     Route: 062
  13. FENTANYL-100 [Suspect]
     Route: 062
  14. FENTANYL-100 [Suspect]
     Dosage: 2 X 75 UG/HR PATCH
     Route: 062
  15. HIV MEDICATION [Concomitant]
     Route: 065
  16. LYRICA [Concomitant]
     Route: 065
  17. OXYCODONE [Concomitant]
     Route: 065

REACTIONS (6)
  - APPLICATION SITE REACTION [None]
  - COGNITIVE DISORDER [None]
  - DERMATITIS CONTACT [None]
  - FEELING ABNORMAL [None]
  - NAUSEA [None]
  - PRODUCT QUALITY ISSUE [None]
